FAERS Safety Report 6939497-1 (Version None)
Quarter: 2010Q3

REPORT INFORMATION
  Report Type: 
  Country: None (occurrence: None)
  Receive Date: 20100824
  Receipt Date: 20100816
  Transmission Date: 20110219
  Serious: Yes (Other)
  Sender: FDA-Public Use
  Company Number: US-AMGEN-KDL431726

PATIENT
  Sex: Female

DRUGS (1)
  1. ENBREL [Suspect]
     Indication: PRODUCT USED FOR UNKNOWN INDICATION
     Route: 058
     Dates: start: 20100722

REACTIONS (23)
  - ABDOMINAL PAIN [None]
  - BILIRUBIN URINE [None]
  - CHEST DISCOMFORT [None]
  - FEELING HOT [None]
  - FLUSHING [None]
  - HEADACHE [None]
  - HEPATIC ENZYME INCREASED [None]
  - INJECTION SITE ABSCESS [None]
  - INJECTION SITE ERYTHEMA [None]
  - INJECTION SITE HAEMATOMA [None]
  - INJECTION SITE INDURATION [None]
  - INJECTION SITE PRURITUS [None]
  - INJECTION SITE RASH [None]
  - MICTURITION URGENCY [None]
  - NECK PAIN [None]
  - PARANASAL SINUS HYPERSECRETION [None]
  - PROTEIN URINE PRESENT [None]
  - RASH ERYTHEMATOUS [None]
  - RASH PRURITIC [None]
  - SINUS HEADACHE [None]
  - SYNOVIAL CYST [None]
  - URINE ODOUR ABNORMAL [None]
  - WHITE BLOOD CELL COUNT INCREASED [None]
